FAERS Safety Report 4548694-4 (Version None)
Quarter: 2005Q1

REPORT INFORMATION
  Report Type: 
  Country: None (occurrence: None)
  Receive Date: 20050107
  Receipt Date: 20050107
  Transmission Date: 20050727
  Serious: Yes (Hospitalization)
  Sender: FDA-Public Use
  Company Number: None

PATIENT
  Sex: Male
  Weight: 71.6683 kg

DRUGS (9)
  1. VALPROIC ACID [Suspect]
     Indication: HIV INFECTION
     Dosage: 3 PILLS   BID   ORAL
     Route: 048
     Dates: start: 20041014, end: 20041216
  2. AZT   300MG [Suspect]
     Indication: HIV INFECTION
     Dosage: 1 TABLET   BID   ORAL
     Route: 048
     Dates: start: 20040202, end: 20041216
  3. CAPSAICIN CREAM [Concomitant]
  4. CHLORETRIMETON [Concomitant]
  5. DOXY [Concomitant]
  6. FLUNISOLIDE NASAL SPRAY [Concomitant]
  7. TEMAZEPAM [Concomitant]
  8. TENOFOVIR [Concomitant]
  9. TRAZODONE [Concomitant]

REACTIONS (2)
  - FAECAL OCCULT BLOOD POSITIVE [None]
  - HAEMATOCRIT DECREASED [None]
